FAERS Safety Report 7070490-7 (Version None)
Quarter: 2010Q4

REPORT INFORMATION
  Report Type: 
  Country: None (occurrence: None)
  Receive Date: 20101027
  Receipt Date: 20101027
  Transmission Date: 20110411
  Serious: Yes (Other)
  Sender: FDA-Public Use
  Company Number: None

PATIENT
  Age: 32 Year
  Sex: Male
  Weight: 102 kg

DRUGS (6)
  1. AMIODARONE HCL [Suspect]
     Indication: ATRIAL TACHYCARDIA
     Dosage: 250 MG 0 AND 6 HRS IV BOLUS
     Route: 040
     Dates: start: 20100630, end: 20100701
  2. AMIODARONE HCL [Suspect]
     Dosage: 900 MG OVER 24 HOURS IV DRIP
     Route: 041
  3. DIGOXIN [Suspect]
  4. SOTALOL HCL [Suspect]
  5. LISINOPRIL [Suspect]
  6. COUMADIN [Suspect]

REACTIONS (2)
  - MUSCLE SPASMS [None]
  - TENDERNESS [None]
